FAERS Safety Report 23439643 (Version 2)
Quarter: 2024Q1

REPORT INFORMATION
  Report Type: Spontaneous
  Country: US (occurrence: US)
  Receive Date: 20240124
  Receipt Date: 20240312
  Transmission Date: 20240409
  Serious: Yes (Hospitalization)
  Sender: FDA-Public Use
  Company Number: US-TEVA-VS-3136223

PATIENT
  Age: 35 Year
  Sex: Female
  Weight: 172 kg

DRUGS (4)
  1. PREDNISONE [Suspect]
     Active Substance: PREDNISONE
     Indication: Rheumatoid arthritis
     Dosage: 10MG-20MG DAILY FOR 2-3YEARS
     Route: 065
  2. DEXAMETHASONE [Suspect]
     Active Substance: DEXAMETHASONE
     Indication: Rheumatoid arthritis
     Route: 065
  3. MIFEPRISTONE [Suspect]
     Active Substance: MIFEPRISTONE
     Indication: Pseudo Cushing^s syndrome
     Dosage: DOSE WAS INCREASED IN INCREMENTS UP TO 1200MG
     Route: 065
  4. MIFEPRISTONE [Suspect]
     Active Substance: MIFEPRISTONE
     Indication: Pseudo Cushing^s syndrome
     Route: 065

REACTIONS (2)
  - Pseudo Cushing^s syndrome [Recovered/Resolved]
  - Nausea [Recovered/Resolved]
